FAERS Safety Report 5573376-X (Version None)
Quarter: 2007Q4

REPORT INFORMATION
  Report Type: 
  Country: None (occurrence: None)
  Receive Date: 20071220
  Receipt Date: 20071220
  Transmission Date: 20080405
  Serious: Yes (Other)
  Sender: FDA-Public Use
  Company Number: None

PATIENT
  Age: 55 Year
  Sex: Female
  Weight: 66.6788 kg

DRUGS (1)
  1. COLISTIN 150 MG PARKE-DAVIS [Suspect]
     Indication: PNEUMONIA
     Dosage: 75MG 8 ENDOTRACHEAL
     Route: 007
     Dates: start: 20071010, end: 20071211

REACTIONS (1)
  - PNEUMOTHORAX [None]
